FAERS Safety Report 25342251 (Version 1)
Quarter: 2025Q2

REPORT INFORMATION
  Report Type: Spontaneous
  Country: GB (occurrence: GB)
  Receive Date: 20250521
  Receipt Date: 20250521
  Transmission Date: 20250716
  Serious: Yes (Hospitalization, Other)
  Sender: MYLAN
  Company Number: None

PATIENT
  Age: 64 Year
  Sex: Female

DRUGS (23)
  1. NITROGLYCERIN [Suspect]
     Active Substance: NITROGLYCERIN
     Indication: Chest pain
  2. BUMETANIDE [Suspect]
     Active Substance: BUMETANIDE
     Indication: Product used for unknown indication
     Dosage: 1 MILLIGRAM, BID (1 MG TABLETS TAKE ONE IN THE MORNING AND ONE AT LUNCHTIME)
     Dates: start: 20250428
  3. RAMIPRIL [Suspect]
     Active Substance: RAMIPRIL
     Indication: Product used for unknown indication
     Dosage: 2.5 MILLIGRAM, BID  (2.5 MG CAPSULES TWICE A DAY - REDUCED AND DOSE CHANGED TO NIGHT0
  4. BISOPROLOL [Suspect]
     Active Substance: BISOPROLOL
     Indication: Product used for unknown indication
     Dosage: 1 DOSAGE FORM, QD (2.5 MG TABLETS TAKE ONE TABLET DAILY)
  5. EPLERENONE [Suspect]
     Active Substance: EPLERENONE
     Indication: Product used for unknown indication
     Dosage: 1 DOSAGE FORM, AM  (25 MG TABLETS ONE TO BE TAKEN IN THE MORNING)
  6. ATORVASTATIN [Concomitant]
     Active Substance: ATORVASTATIN
     Dosage: 1 DOSAGE FORM, PM (80 MG TABLETS ONE TO BE TAKEN AT NIGHT)
  7. LORATADINE [Concomitant]
     Active Substance: LORATADINE
     Dosage: 1 DOSAGE FORM, QD (10 MG TABLETS ONE TO BE TAKEN DAILY)
  8. ZOPICLONE [Concomitant]
     Active Substance: ZOPICLONE
     Dosage: 1 DOSAGE FORM, PM (7.5 MG TABLETS ONE TO BE TAKEN AT NIGHT, PRN, SHORT TERM, ADDICTIVE, WEAN OFF 7 TABLE)
  9. CALCIUM CARBONATE\CHOLECALCIFEROL [Concomitant]
     Active Substance: CALCIUM CARBONATE\CHOLECALCIFEROL
     Dosage: UNK UNK, BID (DISSOLVE 1500 MG / 400 UNIT EFFERVESCENT TABLETS TWICE A DAY)
  10. PREGABALIN [Concomitant]
     Active Substance: PREGABALIN
     Dosage: 1 DOSAGE FORM, BID (300 MG CAPSULES ONE TO BE TAKEN TWICE A DAY)
  11. FOLIC ACID [Concomitant]
     Active Substance: FOLIC ACID
     Dosage: 1 DOSAGE FORM, QD (5 MG TABLETS ONE TO BE TAKEN EACH DAY)
  12. LANSOPRAZOLE [Concomitant]
     Active Substance: LANSOPRAZOLE
     Dosage: 1 DOSAGE FORM, AM (15 MG GASTRO-RESISTANT CAPSULES ONE TO BE TAKEN EACH MORNING)
  13. CLOTRIMAZOLE [Concomitant]
     Active Substance: CLOTRIMAZOLE
     Dosage: 20 MILLIGRAM, BID (2% CREAM APPLY TWICE A DAY 20 GRAM)
  14. ALLOPURINOL [Concomitant]
     Active Substance: ALLOPURINOL
     Dosage: 1 DOSAGE FORM, QD (100 MG TABLETS ONE TO BE TAKEN EACH DAY AFTER FOOD)
     Dates: start: 20250428
  15. BECLOMETHASONE DIPROPIONATE\FORMOTEROL FUMARATE\GLYCOPYRROLATE [Concomitant]
     Active Substance: BECLOMETHASONE DIPROPIONATE\FORMOTEROL FUMARATE\GLYCOPYRROLATE
  16. CLOPIDOGREL [Concomitant]
     Active Substance: CLOPIDOGREL BISULFATE
     Dosage: 1 DOSAGE FORM, AM 75 MG TABLETS ONE TO BE TAKEN EACH MORNING, UNTIL NOVEMBER 2025)
  17. DAPAGLIFLOZIN [Concomitant]
     Active Substance: DAPAGLIFLOZIN
     Dosage: 1 DOSAGE FORM, QD (10 MG TABLETS ONE TO BE TAKEN DAILY)
  18. ASPIRIN [Concomitant]
     Active Substance: ASPIRIN
     Dosage: 1 DOSAGE FORM, AM (75 MG TABLETS ONE TO BE TAKEN EACH MORNING)
  19. DOXYCYCLINE [Concomitant]
     Active Substance: DOXYCYCLINE
     Dosage: 1 DOSAGE FORM, QD (100 MG CAPSULES ONE TO BE TAKEN EACH DAY, PER DERMATOLOGY CLINIC)
  20. INSULIN ASPART [Concomitant]
     Active Substance: INSULIN ASPART
     Dosage: 3 MILLILITER, BID (100 UNITS / ML SUSPENSION FOR INJECTION 3 ML PRE-FILLED PENS TWICE A DAY)
  21. FLUCONAZOLE [Concomitant]
     Active Substance: FLUCONAZOLE
  22. DIHYDROCODEINE [Concomitant]
     Active Substance: DIHYDROCODEINE
  23. ALBUTEROL [Concomitant]
     Active Substance: ALBUTEROL
     Dosage: 2 DOSAGE FORM, QID (100 MICROGRAMS / DOSE INHALER CFC FREE 2 PUFFS AS REQUIRED FOUR TIMES A DAY)

REACTIONS (3)
  - Dizziness [Unknown]
  - Femoral neck fracture [Unknown]
  - Fall [Recovered/Resolved]
